FAERS Safety Report 8125158-2 (Version None)
Quarter: 2012Q1

REPORT INFORMATION
  Report Type: 
  Country: None (occurrence: None)
  Receive Date: 20120206
  Receipt Date: 20120123
  Transmission Date: 20120608
  Serious: Yes (Death)
  Sender: FDA-Public Use
  Company Number: 2012PL000015

PATIENT
  Age: 76 Year
  Sex: Male

DRUGS (1)
  1. ALLOPURINOL [Suspect]
     Indication: PRODUCT USED FOR UNKNOWN INDICATION
     Dosage: 0.1 GM;BID
     Dates: start: 20100101

REACTIONS (25)
  - EPIDERMOLYSIS BULLOSA [None]
  - HYPERURICAEMIA [None]
  - PLEURAL EFFUSION [None]
  - CEREBRAL INFARCTION [None]
  - SCAB [None]
  - TUBULOINTERSTITIAL NEPHRITIS [None]
  - LACUNAR INFARCTION [None]
  - SKIN NECROSIS [None]
  - HYPOPROTEINAEMIA [None]
  - HYPERGLYCAEMIA [None]
  - SERUM FERRITIN INCREASED [None]
  - ARTERIOSCLEROSIS [None]
  - HYPERTENSION [None]
  - PULMONARY HAEMORRHAGE [None]
  - ANAEMIA [None]
  - RENAL FAILURE CHRONIC [None]
  - HYPERKALAEMIA [None]
  - RESPIRATORY ALKALOSIS [None]
  - ZYGOMYCOSIS [None]
  - AZOTAEMIA [None]
  - HEPATITIS [None]
  - CORONARY ARTERY DISEASE [None]
  - NUTRITIONAL CONDITION ABNORMAL [None]
  - MYOCARDIAL INFARCTION [None]
  - METABOLIC ACIDOSIS [None]
